FAERS Safety Report 16437110 (Version 1)
Quarter: 2019Q2

REPORT INFORMATION
  Report Type: Report from Study
  Country: US (occurrence: US)
  Receive Date: 20190615
  Receipt Date: 20190615
  Transmission Date: 20190711
  Serious: Yes (Life-Threatening, Hospitalization)
  Sender: FDA-Public Use
  Company Number: PHEH2019US023772

PATIENT
  Age: 1 Year
  Sex: Male
  Weight: 4.6 kg

DRUGS (6)
  1. ASPIRINE [Concomitant]
     Active Substance: ASPIRIN
     Indication: PULMONARY VEIN STENOSIS
     Dosage: 46.5 MG, QD
     Route: 048
  2. ZANTAC [Concomitant]
     Active Substance: RANITIDINE HYDROCHLORIDE
     Indication: GASTROOESOPHAGEAL REFLUX DISEASE
     Dosage: 10 MG, TID
     Route: 048
  3. SILDENAFIL. [Concomitant]
     Active Substance: SILDENAFIL
     Indication: PULMONARY HYPERTENSION
     Dosage: 4.5 MG, TID
     Route: 048
  4. GLEEVEC [Suspect]
     Active Substance: IMATINIB MESYLATE
     Indication: PULMONARY VEIN STENOSIS
     Dosage: 95 MG, QD
     Route: 048
  5. PLAVIX [Concomitant]
     Active Substance: CLOPIDOGREL BISULFATE
     Indication: PULMONARY VEIN STENOSIS
     Dosage: 1.3 MG, QD
     Route: 048
  6. BUMETANIDE. [Concomitant]
     Active Substance: BUMETANIDE
     Indication: PULMONARY VEIN STENOSIS
     Dosage: 0.45 MG, QD
     Route: 048

REACTIONS (7)
  - Dehydration [Recovering/Resolving]
  - Gastrointestinal disorder [Unknown]
  - Respiratory disorder [Unknown]
  - Pulmonary vein stenosis [Recovering/Resolving]
  - Disease recurrence [Recovering/Resolving]
  - Product use issue [Unknown]
  - Product use in unapproved indication [Unknown]

NARRATIVE: CASE EVENT DATE: 20190417
